FAERS Safety Report 9148362 (Version 1)
Quarter: 2013Q1

REPORT INFORMATION
  Report Type: Report from Study
  Country: DE (occurrence: DE)
  Receive Date: 20130308
  Receipt Date: 20130308
  Transmission Date: 20140127
  Serious: Yes (Hospitalization)
  Sender: FDA-Public Use
  Company Number: DE-009507513-1303DEU003467

PATIENT
  Sex: Female
  Weight: 61 kg

DRUGS (6)
  1. BOCEPREVIR [Suspect]
     Indication: CHRONIC HEPATITIS C
     Dosage: 800 MG, TID
     Route: 048
     Dates: start: 20111223
  2. RIBAVIRIN [Suspect]
     Indication: CHRONIC HEPATITIS C
     Dosage: 1000 MG
     Route: 048
  3. PEGINTERFERON ALFA-2A [Suspect]
     Indication: CHRONIC HEPATITIS C
     Dosage: 180 MICROGRAM, QW
     Route: 058
     Dates: start: 20111125
  4. PREGABALIN [Suspect]
     Indication: FIBROMYALGIA
     Dosage: 75MG, TAPERED OFF
     Route: 048
  5. FORMOTEROL FUMARATE [Concomitant]
     Indication: ASTHMA
     Dosage: 2DF
     Route: 055
  6. NOVOPULMON [Concomitant]
     Indication: ASTHMA
     Dosage: 2 DF
     Route: 055

REACTIONS (1)
  - Palpitations [Recovered/Resolved]
